FAERS Safety Report 4890879-1 (Version None)
Quarter: 2006Q1

REPORT INFORMATION
  Report Type: 
  Country: None (occurrence: None)
  Receive Date: 20060123
  Receipt Date: 20060105
  Transmission Date: 20060701
  Serious: Yes (Hospitalization)
  Sender: FDA-Public Use
  Company Number: FEI2006-0035

PATIENT
  Age: 27 Year
  Sex: Female

DRUGS (3)
  1. INTRAUTERINE COPPER CONTRACEPTIVE [Suspect]
     Indication: CONTRACEPTION
     Dosage: SEE IMAGE
     Route: 015
     Dates: start: 20021230, end: 20040807
  2. INTRAUTERINE COPPER CONTRACEPTIVE [Suspect]
     Indication: CONTRACEPTION
     Dosage: SEE IMAGE
     Route: 015
     Dates: start: 20050501
  3. PRENATAL VITAMINS (PRENATAL VITAMINS) [Concomitant]

REACTIONS (5)
  - AMNIOTIC FLUID VOLUME INCREASED [None]
  - BREECH PRESENTATION [None]
  - CAESAREAN SECTION [None]
  - PREGNANCY WITH CONTRACEPTIVE DEVICE [None]
  - WEIGHT INCREASED [None]
